FAERS Safety Report 22330174 (Version 1)
Quarter: 2023Q2

REPORT INFORMATION
  Report Type: Spontaneous
  Country: US (occurrence: None)
  Receive Date: 20230517
  Receipt Date: 20230517
  Transmission Date: 20230721
  Serious: No
  Sender: FDA-Public Use
  Company Number: US-ROCHE-3099685

PATIENT
  Sex: Male

DRUGS (2)
  1. ACTEMRA [Suspect]
     Active Substance: TOCILIZUMAB
     Indication: Rheumatoid arthritis
     Dosage: ONGOING-NO
     Route: 058
     Dates: start: 20201104, end: 202202
  2. ORENCIA [Concomitant]
     Active Substance: ABATACEPT
     Dosage: YES

REACTIONS (1)
  - Musculoskeletal disorder [Not Recovered/Not Resolved]
